FAERS Safety Report 13630075 (Version 1)
Quarter: 2017Q2

REPORT INFORMATION
  Report Type: Spontaneous
  Country: JP (occurrence: JP)
  Receive Date: 20170608
  Receipt Date: 20170608
  Transmission Date: 20170830
  Serious: Yes (Other)
  Sender: FDA-Public Use
  Company Number: JP-TEVA-775393ROM

PATIENT
  Age: 56 Year
  Sex: Male

DRUGS (5)
  1. PENTAMIDINE [Suspect]
     Active Substance: PENTAMIDINE
     Indication: ANTI-INFECTIVE THERAPY
     Route: 065
  2. LEVOFLOXACIN. [Suspect]
     Active Substance: LEVOFLOXACIN
     Indication: ANTI-INFECTIVE THERAPY
     Route: 065
  3. CEFOZOPRAN [Suspect]
     Active Substance: CEFOZOPRAN
     Indication: ANTI-INFECTIVE THERAPY
     Route: 065
  4. PREDNISOLONE. [Suspect]
     Active Substance: PREDNISOLONE
     Indication: IMMUNOSUPPRESSANT DRUG THERAPY
     Route: 065
  5. TACROLIMUS. [Suspect]
     Active Substance: TACROLIMUS
     Indication: IMMUNOSUPPRESSANT DRUG THERAPY
     Route: 065

REACTIONS (2)
  - Ecthyma [Recovered/Resolved]
  - Staphylococcal infection [Recovered/Resolved]
